FAERS Safety Report 17022611 (Version 3)
Quarter: 2020Q1

REPORT INFORMATION
  Report Type: Report from Study
  Country: US (occurrence: US)
  Receive Date: 20191112
  Receipt Date: 20200110
  Transmission Date: 20200409
  Serious: Yes (Hospitalization)
  Sender: FDA-Public Use
  Company Number: US-PFIZER INC-2019475821

PATIENT
  Age: 63 Year
  Sex: Male
  Weight: 105.94 kg

DRUGS (4)
  1. DAUNORUBICIN [Suspect]
     Active Substance: DAUNORUBICIN
     Indication: ACUTE MYELOID LEUKAEMIA
     Dosage: 140 MG, DAILY BY CONTINUOUS INFUSION
     Route: 041
     Dates: start: 20190724, end: 20190811
  2. CYTARABINE. [Suspect]
     Active Substance: CYTARABINE
     Indication: ACUTE MYELOID LEUKAEMIA
     Dosage: 230 MG, DAILY BY CONTINUOUS INFUSION
     Route: 041
     Dates: start: 20190724, end: 20190814
  3. CYTARABINE. [Suspect]
     Active Substance: CYTARABINE
     Indication: ACUTE MYELOID LEUKAEMIA
     Dosage: 2.290 G, OVER 3 HOURS TWICE DAILY ON DAYS 1, 3, 5
     Route: 042
     Dates: start: 20191011, end: 20191016
  4. GLASDEGIB [Suspect]
     Active Substance: GLASDEGIB
     Indication: ACUTE MYELOID LEUKAEMIA
     Dosage: ONCE DAILY CONTINUOS
     Route: 048
     Dates: start: 20190724

REACTIONS (1)
  - Febrile neutropenia [Recovered/Resolved]

NARRATIVE: CASE EVENT DATE: 20191030
